FAERS Safety Report 4664669-9 (Version None)
Quarter: 2005Q2

REPORT INFORMATION
  Report Type: 
  Country: None (occurrence: None)
  Receive Date: 20050518
  Receipt Date: 20050506
  Transmission Date: 20051028
  Serious: Yes (Other)
  Sender: FDA-Public Use
  Company Number: AU-SANOFI-SYNTHELABO-A01200503062

PATIENT
  Sex: Male

DRUGS (3)
  1. ELOXATIN [Suspect]
     Route: 042
  2. FLUOROURACIL [Concomitant]
     Route: 042
  3. LEUCOVORIN CALCIUM [Concomitant]
     Route: 042

REACTIONS (1)
  - SUBCLAVIAN VEIN THROMBOSIS [None]
